FAERS Safety Report 21799498 (Version 1)
Quarter: 2022Q4

REPORT INFORMATION
  Report Type: Spontaneous
  Country: US (occurrence: None)
  Receive Date: 20221229
  Receipt Date: 20221229
  Transmission Date: 20230112
  Serious: Yes (Hospitalization)
  Sender: FDA-Public Use
  Company Number: None

PATIENT
  Age: 68 Year
  Sex: Female

DRUGS (27)
  1. AMBRISENTAN [Suspect]
     Active Substance: AMBRISENTAN
     Indication: Pulmonary arterial hypertension
     Dosage: FREQUENCY : DAILY;?
     Route: 048
     Dates: start: 20220222
  2. AMBRISENTAN [Suspect]
     Active Substance: AMBRISENTAN
     Indication: Heritable pulmonary arterial hypertension
  3. NORTRIPTYLINE [Concomitant]
  4. DENNA PLUS [Concomitant]
  5. IBUPROFEN [Concomitant]
     Active Substance: IBUPROFEN
  6. MORPHINE [Concomitant]
  7. METHOCARBAMOL [Concomitant]
  8. NARCAN [Concomitant]
  9. TYLENOL [Concomitant]
  10. MAGNESIUM OXIDE [Concomitant]
  11. METFORMIN [Concomitant]
  12. ONDANSETRON [Concomitant]
  13. CLEARLAX [Concomitant]
  14. GABAPENTIN [Concomitant]
  15. POTASSIUM CHLORIDE [Concomitant]
  16. INSULIN LISPRO [Concomitant]
  17. ASTHMA [Concomitant]
  18. INSULIN GLARGINE [Concomitant]
  19. ROSUVASTATIN [Concomitant]
  20. HYDROCHLOROTHIAZIDE [Concomitant]
  21. SPIRIVA RESPIMAT [Concomitant]
  22. ASPIRIN [Concomitant]
  23. FUROSEMIDE [Concomitant]
  24. WIXELA INHUB [Concomitant]
  25. MONTELUKAST [Concomitant]
  26. DUONEB [Concomitant]
  27. VITAMIN D3 [Concomitant]

REACTIONS (7)
  - Fall [None]
  - Accident [None]
  - Influenza [None]
  - Urine analysis abnormal [None]
  - Dysuria [None]
  - Type 2 diabetes mellitus [None]
  - Ketoacidosis [None]

NARRATIVE: CASE EVENT DATE: 20221204
